FAERS Safety Report 13584611 (Version 1)
Quarter: 2017Q2

REPORT INFORMATION
  Report Type: Other
  Country: US (occurrence: US)
  Receive Date: 20170526
  Receipt Date: 20170526
  Transmission Date: 20170830
  Serious: No
  Sender: FDA-Public Use
  Company Number: US-APOTEX-2017AP008395

PATIENT
  Age: 27 Year
  Sex: Female

DRUGS (1)
  1. CLARISPRAY NASAL ALLERGY [Suspect]
     Active Substance: FLUTICASONE PROPIONATE
     Indication: NASAL CONGESTION
     Route: 065

REACTIONS (5)
  - Product odour abnormal [Unknown]
  - Headache [Unknown]
  - Nasal discomfort [Unknown]
  - Drug ineffective [Unknown]
  - Abdominal discomfort [Unknown]
